FAERS Safety Report 4277631-5 (Version None)
Quarter: 2004Q1

REPORT INFORMATION
  Report Type: 
  Country: None (occurrence: None)
  Receive Date: 20040121
  Receipt Date: 20040108
  Transmission Date: 20041129
  Serious: No
  Sender: FDA-Public Use
  Company Number: 04P-163-0246671-00

PATIENT
  Age: 1 Day
  Sex: Male

DRUGS (1)
  1. KALETRA [Suspect]

REACTIONS (4)
  - MATERNAL DRUGS AFFECTING FOETUS [None]
  - NEONATAL DISORDER [None]
  - PELVI-URETERIC OBSTRUCTION [None]
  - PYELECTASIA [None]
